FAERS Safety Report 10100064 (Version 3)
Quarter: 2014Q2

REPORT INFORMATION
  Report Type: Spontaneous
  Country: IT (occurrence: IT)
  Receive Date: 20140423
  Receipt Date: 20140605
  Transmission Date: 20141212
  Serious: Yes (Other)
  Sender: FDA-Public Use
  Company Number: IT-TEVA-476708ISR

PATIENT
  Age: 58 Year
  Sex: Male

DRUGS (4)
  1. ENALAPRIL [Suspect]
     Indication: DRUG ABUSE
     Dosage: 20 MILLIGRAM DAILY;
     Route: 048
     Dates: start: 20130712, end: 20130712
  2. MINIAS - 2 MG COMPRESSE RIVESTITE - BAYER S.P.A. [Suspect]
     Indication: DRUG ABUSE
     Dates: start: 20130712, end: 20130712
  3. NORVASC - 10 MG COMPRESSE - PFIZER ITALIA S.R.L. [Suspect]
     Indication: DRUG ABUSE
     Dosage: 10 MILLIGRAM DAILY;
     Route: 048
     Dates: start: 20130712, end: 20130712
  4. MUSCORIL - 8 MG COMPRESSE ORODISPERSIBILI -  SANOFI-AVENTIS S.P.A. [Suspect]
     Indication: DRUG ABUSE
     Dosage: 80 MG TOTAL
     Route: 048
     Dates: start: 20130712, end: 20130712

REACTIONS (4)
  - Depressed level of consciousness [Recovering/Resolving]
  - Headache [Recovering/Resolving]
  - Self injurious behaviour [Unknown]
  - Drug abuse [Unknown]
